FAERS Safety Report 8222350-3 (Version None)
Quarter: 2012Q1

REPORT INFORMATION
  Report Type: 
  Country: None (occurrence: None)
  Receive Date: 20120316
  Receipt Date: 20101123
  Transmission Date: 20120608
  Serious: Yes (Hospitalization, Other)
  Sender: FDA-Public Use
  Company Number: CA-021479

PATIENT
  Age: 75 Year
  Sex: Male

DRUGS (6)
  1. CEFTRIAXONE [Concomitant]
  2. ACETAMINOPHEN [Concomitant]
  3. (CHLORAMBUCIL) [Suspect]
     Indication: CHRONIC LYMPHOCYTIC LEUKAEMIA
     Dosage: 10 MGM2 AT DAYS 1-7 EVERY 28 DAYS ORAL
     Route: 048
     Dates: start: 20101020, end: 20101221
  4. AZITHROMYCIN [Concomitant]
  5. VANCOMYCIN [Concomitant]
  6. ACETAMINOPHEN [Concomitant]

REACTIONS (2)
  - HAEMOLYSIS [None]
  - PLEURAL EFFUSION [None]
